FAERS Safety Report 5252549-X (Version None)
Quarter: 2007Q1

REPORT INFORMATION
  Report Type: 
  Country: None (occurrence: None)
  Receive Date: 20070227
  Receipt Date: 20070227
  Transmission Date: 20070707
  Serious: Yes (Other)
  Sender: FDA-Public Use
  Company Number: None

PATIENT
  Sex: Female
  Weight: 55.7924 kg

DRUGS (1)
  1. ENBREL [Suspect]
     Indication: RHEUMATOID ARTHRITIS
     Dosage: TWO INJECTIONS  EVERY WEEK  SQ
     Route: 058
     Dates: start: 20000101, end: 20061201

REACTIONS (4)
  - ANOREXIA [None]
  - LYMPHOMA [None]
  - MALAISE [None]
  - NAUSEA [None]
